FAERS Safety Report 22281581 (Version 5)
Quarter: 2023Q4

REPORT INFORMATION
  Report Type: Report from Study
  Country: US (occurrence: US)
  Receive Date: 20230504
  Receipt Date: 20231128
  Transmission Date: 20240109
  Serious: No
  Sender: FDA-Public Use
  Company Number: US-BIOVITRUM-2023US01555

PATIENT
  Age: 54 Year
  Sex: Male

DRUGS (3)
  1. KINERET [Suspect]
     Active Substance: ANAKINRA
     Indication: Gout
     Dosage: 100 MG, DAILY
     Route: 058
  2. KINERET [Suspect]
     Active Substance: ANAKINRA
     Dosage: 100 MG, DAILY
     Route: 058
     Dates: start: 202301
  3. KINERET [Suspect]
     Active Substance: ANAKINRA
     Dosage: 100 MG, DAILY
     Route: 058
     Dates: start: 20230104

REACTIONS (10)
  - Intentional product misuse [Not Recovered/Not Resolved]
  - Arthralgia [Unknown]
  - Pain in extremity [Unknown]
  - Product dose omission in error [Unknown]
  - Injection site bruising [Unknown]
  - Diarrhoea [Unknown]
  - Rotator cuff syndrome [Unknown]
  - Salivary gland enlargement [Unknown]
  - Swelling face [Unknown]
  - Infection [Unknown]

NARRATIVE: CASE EVENT DATE: 20230104
